FAERS Safety Report 7199138-8 (Version None)
Quarter: 2010Q4

REPORT INFORMATION
  Report Type: 
  Country: None (occurrence: None)
  Receive Date: 20101223
  Receipt Date: 20101223
  Transmission Date: 20110411
  Serious: Yes (Hospitalization, Other)
  Sender: FDA-Public Use
  Company Number: None

PATIENT
  Age: 70 Year
  Sex: Female
  Weight: 78.4 kg

DRUGS (3)
  1. CEFEPIME [Suspect]
     Indication: PYREXIA
     Dosage: 2 GRAMS EVERY 8 HOURS IV DRIP
     Route: 041
     Dates: start: 20101110, end: 20101117
  2. VANCOMYCIN [Concomitant]
  3. PIPERACILLIN AND TAZOBACTAM [Concomitant]

REACTIONS (11)
  - CONVULSION [None]
  - DELIRIUM [None]
  - FEELING ABNORMAL [None]
  - HEADACHE [None]
  - HYPERREFLEXIA [None]
  - MENTAL STATUS CHANGES [None]
  - MUSCLE TWITCHING [None]
  - MYOCLONUS [None]
  - NAUSEA [None]
  - STATUS EPILEPTICUS [None]
  - UNRESPONSIVE TO STIMULI [None]
